FAERS Safety Report 6258102-3 (Version None)
Quarter: 2009Q3

REPORT INFORMATION
  Report Type: 
  Country: None (occurrence: None)
  Receive Date: 20090702
  Receipt Date: 20090617
  Transmission Date: 20100115
  Serious: Yes (Life-Threatening, Hospitalization)
  Sender: FDA-Public Use
  Company Number: DSJ-2009-06011

PATIENT
  Age: 79 Year
  Sex: Male
  Weight: 47.4 kg

DRUGS (10)
  1. OLMESARTAN MEDOXOMIL [Suspect]
     Indication: HYPERTENSION
     Dosage: 20 MG, PER ORAL
     Route: 048
     Dates: start: 20070219, end: 20090511
  2. KALIMATE (CALCIUM POLYSTYRENE SULFONATE) (ORAL POWDER) (CALCIUM POLYST [Suspect]
     Dosage: 10 GM (5 GM, 2 IN 1 D), PER ORAL
     Route: 048
     Dates: start: 20090209
  3. MEVALOTIN (PRAVASTATIN SODIUM) (PRAVASTATIN SODIUM) [Concomitant]
  4. MAGNESIUM OXIDE (MAGNESIUM OXIDE) (MAGNESIUM OXIDE) [Concomitant]
  5. CARDENALIN (DOXAZOSIN MESILATE) (DOXAZOSIN MESILATE) [Concomitant]
  6. ADALAT CC [Concomitant]
  7. PANTOSIN (PANTETHINE) (TABLET) (PANTETHINE) [Concomitant]
  8. PURSENNID (SENNOSIDE A+B, SENNOSIDE A+B CALCIUM) (TABLET) (SENNOSIDE A [Concomitant]
  9. NOVORAPID (INSULIN ASPART) (INSULIN ASPART) [Concomitant]
  10. NOVORAPID 30MIX (INSULIN ASPART) (INSULIN ASPART) [Concomitant]

REACTIONS (6)
  - CONSTIPATION [None]
  - DECREASED APPETITE [None]
  - DEHYDRATION [None]
  - HYPERKALAEMIA [None]
  - RENAL IMPAIRMENT [None]
  - TREATMENT NONCOMPLIANCE [None]
